FAERS Safety Report 7786081-6 (Version None)
Quarter: 2011Q3

REPORT INFORMATION
  Report Type: 
  Country: None (occurrence: None)
  Receive Date: 20110929
  Receipt Date: 20110921
  Transmission Date: 20111222
  Serious: Yes (Hospitalization)
  Sender: FDA-Public Use
  Company Number: US-B.I. PHARMACEUTICALS,INC./RIDGEFIELD-2011-BP-19786BP

PATIENT
  Age: 74 Year
  Sex: Female

DRUGS (3)
  1. PRADAXA [Suspect]
     Indication: ATRIAL FIBRILLATION
     Dosage: 300 MG
     Route: 048
     Dates: start: 20110701, end: 20110722
  2. PRAVASTATIN [Concomitant]
     Dosage: 20 MG
     Dates: start: 20050101
  3. ATENOLOL [Concomitant]
     Dosage: 50 MG
     Dates: start: 20050101

REACTIONS (3)
  - GASTROINTESTINAL ANGIODYSPLASIA HAEMORRHAGIC [None]
  - RECTAL HAEMORRHAGE [None]
  - LARGE INTESTINAL HAEMORRHAGE [None]
